FAERS Safety Report 5597169-2 (Version None)
Quarter: 2008Q1

REPORT INFORMATION
  Report Type: 
  Country: None (occurrence: None)
  Receive Date: 20080121
  Receipt Date: 20080107
  Transmission Date: 20080703
  Serious: Yes (Death)
  Sender: FDA-Public Use
  Company Number: US-WYE-H02026608

PATIENT
  Age: 39 Year
  Sex: Female

DRUGS (4)
  1. DEXTROMETHORPHAN HYDROBROMIDE [Suspect]
     Dosage: UNKNOWN
     Route: 048
     Dates: start: 20060101, end: 20060101
  2. AMFEBUTAMONE [Suspect]
     Dosage: UNKNOWN
     Route: 048
  3. DIPHENHYDRAMINE HCL [Suspect]
     Dosage: UNKNOWN
     Route: 048
  4. MEPROBAMATE [Suspect]
     Dosage: UNKNOWN
     Route: 048

REACTIONS (1)
  - INTENTIONAL OVERDOSE [None]
